FAERS Safety Report 5812688-9 (Version None)
Quarter: 2008Q3

REPORT INFORMATION
  Report Type: 
  Country: None (occurrence: None)
  Receive Date: 20080714
  Receipt Date: 20080701
  Transmission Date: 20090109
  Serious: Yes (Other)
  Sender: FDA-Public Use
  Company Number: US-JNJFOC-20080700627

PATIENT
  Age: 75 Year
  Sex: Male
  Weight: 68.4932 kg

DRUGS (7)
  1. DACOGEN [Suspect]
     Indication: MYELODYSPLASTIC SYNDROME
     Dosage: 38 MG, IN 28 DAY, INTRAVENOUS
     Route: 042
     Dates: start: 20071211
  2. COREG CR (CARVEDILOL) [Concomitant]
  3. PRILOSEC [Concomitant]
  4. INDOCIN SR (INDOMETACIN) [Concomitant]
  5. BENADRYL [Concomitant]
  6. ASCORBIC ACID [Concomitant]
  7. ASPIRIN [Concomitant]

REACTIONS (12)
  - ABDOMINAL PAIN UPPER [None]
  - BLOOD PRESSURE INCREASED [None]
  - EXCORIATION [None]
  - GOUT [None]
  - HERPES ZOSTER [None]
  - MUSCULOSKELETAL PAIN [None]
  - RENAL FAILURE [None]
  - SCAB [None]
  - SELF-MEDICATION [None]
  - SKIN NODULE [None]
  - SPLENIC INFARCTION [None]
  - SPLENOMEGALY [None]
